FAERS Safety Report 9059867 (Version 1)
Quarter: 2013Q1

REPORT INFORMATION
  Report Type: Spontaneous
  Country: US (occurrence: None)
  Receive Date: 20130206
  Receipt Date: 20130206
  Transmission Date: 20140127
  Serious: Yes (Other)
  Sender: FDA-Public Use
  Company Number: None

PATIENT
  Sex: Male

DRUGS (1)
  1. NEXIUM [Suspect]
     Indication: NEOPLASM MALIGNANT
     Dosage: ABOUT 6 MONTHS, STILL ON IT
     Route: 048

REACTIONS (3)
  - Lip swelling [None]
  - Paraesthesia oral [None]
  - Food interaction [None]
